APPROVED DRUG PRODUCT: HYDROCORTISONE
Active Ingredient: HYDROCORTISONE
Strength: 1%
Dosage Form/Route: CREAM;TOPICAL
Application: A089706 | Product #001
Applicant: NASKA PHARMACAL CO INC DIV RUGBY DARBY GROUP COSMETICS
Approved: Mar 10, 1988 | RLD: No | RS: No | Type: DISCN